FAERS Safety Report 7521617-1 (Version None)
Quarter: 2011Q2

REPORT INFORMATION
  Report Type: 
  Country: None (occurrence: None)
  Receive Date: 20110603
  Receipt Date: 20110530
  Transmission Date: 20111010
  Serious: Yes (Hospitalization)
  Sender: FDA-Public Use
  Company Number: PT-TEVA-283811ISR

PATIENT
  Sex: Female

DRUGS (2)
  1. PACLITAXEL [Suspect]
     Dosage: 90 MG/M^2
     Dates: start: 20071101, end: 20080401
  2. BEVACIZUMAB [Suspect]
     Dosage: 10MG/KG
     Dates: start: 20071101, end: 20090201

REACTIONS (10)
  - THROMBOSIS IN DEVICE [None]
  - DYSPHONIA [None]
  - POLLAKIURIA [None]
  - ASTHENIA [None]
  - FATIGUE [None]
  - EPISTAXIS [None]
  - DIZZINESS [None]
  - HYPERTENSION [None]
  - NEUROTOXICITY [None]
  - MUCOSAL INFLAMMATION [None]
